FAERS Safety Report 6267516-7 (Version None)
Quarter: 2009Q3

REPORT INFORMATION
  Report Type: 
  Country: None (occurrence: None)
  Receive Date: 20090714
  Receipt Date: 20090707
  Transmission Date: 20100115
  Serious: Yes (Hospitalization)
  Sender: FDA-Public Use
  Company Number: FR-B.I. PHARMACEUTICALS,INC./RIDGEFIELD-2009-FF-00496FF

PATIENT
  Sex: Male

DRUGS (18)
  1. SPIRIVA [Suspect]
     Route: 055
  2. BRONCHODUAL [Suspect]
  3. CEFTRIAXONE WINTROP [Suspect]
     Dosage: 1 G
     Route: 042
     Dates: start: 20090224, end: 20090305
  4. TAVANIC [Suspect]
     Dosage: 1 G
     Route: 048
     Dates: start: 20090224, end: 20090305
  5. TRIFLUCAN [Suspect]
     Route: 048
     Dates: start: 20090301
  6. CEFTRIAXONE WINTROP [Suspect]
     Dosage: 1 G
     Route: 042
     Dates: start: 20090224, end: 20090305
  7. DIFFU K [Concomitant]
     Route: 048
  8. CACIT [Concomitant]
     Route: 048
  9. KARDEGIC [Concomitant]
     Route: 048
  10. SEGLOR [Concomitant]
     Route: 048
  11. PLAVIX [Concomitant]
     Route: 048
  12. SERESTA [Concomitant]
     Route: 048
  13. NEURONTIN [Concomitant]
     Route: 048
  14. INIPOMP [Concomitant]
     Route: 048
  15. CRESTOR [Concomitant]
     Route: 048
  16. XATRAL [Concomitant]
     Route: 048
  17. CONTRAMAL [Concomitant]
     Route: 048
  18. OXYGEN THERAPY [Concomitant]
     Indication: CHRONIC OBSTRUCTIVE PULMONARY DISEASE

REACTIONS (6)
  - CANDIDIASIS [None]
  - CLOSTRIDIUM DIFFICILE COLITIS [None]
  - CULTURE STOOL POSITIVE [None]
  - DECREASED APPETITE [None]
  - NO THERAPEUTIC RESPONSE [None]
  - WEIGHT DECREASED [None]
